FAERS Safety Report 9334394 (Version 1)
Quarter: 2013Q2

REPORT INFORMATION
  Report Type: Spontaneous
  Country: US (occurrence: US)
  Receive Date: 20130606
  Receipt Date: 20130606
  Transmission Date: 20140414
  Serious: No
  Sender: FDA-Public Use
  Company Number: US-AMGEN-USASP2013034794

PATIENT
  Age: 79 Year
  Sex: Female
  Weight: 75 kg

DRUGS (9)
  1. PROLIA [Suspect]
     Indication: OSTEOPENIA
     Dosage: UNK
     Dates: start: 20130429
  2. ANASTROZOLE [Concomitant]
  3. ATENOLOL [Concomitant]
     Dosage: 10 MG, BID
  4. HYDROCHLOROTHIAZIDE [Concomitant]
  5. CALCIUM WITH VITAMIN D             /00944201/ [Concomitant]
  6. VITAMIN D                          /00107901/ [Concomitant]
     Dosage: 2000
  7. FOLIC ACID [Concomitant]
  8. BABY ASPIRIN [Concomitant]
  9. PEPCID                             /00706001/ [Concomitant]

REACTIONS (6)
  - Local swelling [Recovering/Resolving]
  - Stress [Unknown]
  - Joint swelling [Recovered/Resolved]
  - Gastrooesophageal reflux disease [Unknown]
  - Oral pain [Unknown]
  - Dysphonia [Unknown]
